FAERS Safety Report 4393112-2 (Version None)
Quarter: 2004Q3

REPORT INFORMATION
  Report Type: 
  Country: None (occurrence: None)
  Receive Date: 20040706
  Receipt Date: 20040511
  Transmission Date: 20050211
  Serious: Yes (Hospitalization)
  Sender: FDA-Public Use
  Company Number: 200411900FR

PATIENT
  Age: 74 Year
  Sex: Male
  Weight: 80 kg

DRUGS (6)
  1. GLIPIZIDE [Suspect]
     Indication: DIABETES MELLITUS NON-INSULIN-DEPENDENT
     Route: 048
  2. CISPLATIN [Suspect]
     Indication: PLEURAL MESOTHELIOMA
     Route: 042
     Dates: start: 20040217, end: 20040409
  3. HALDOL [Suspect]
     Route: 048
     Dates: end: 20040325
  4. SINTROM [Suspect]
     Indication: PHLEBITIS
     Route: 048
     Dates: start: 20040315
  5. MORPHINE SULFATE [Suspect]
     Route: 048
     Dates: start: 20040323
  6. ALIMTA [Suspect]
     Indication: PLEURAL MESOTHELIOMA
     Route: 042
     Dates: start: 20040217, end: 20040409

REACTIONS (7)
  - AGITATION [None]
  - CONFUSIONAL STATE [None]
  - CONVULSION [None]
  - DELIRIUM [None]
  - HALLUCINATION, VISUAL [None]
  - PHLEBITIS [None]
  - PLEURAL MESOTHELIOMA [None]
